FAERS Safety Report 17983079 (Version 2)
Quarter: 2020Q4

REPORT INFORMATION
  Report Type: Spontaneous
  Country: US (occurrence: US)
  Receive Date: 20200706
  Receipt Date: 20201203
  Transmission Date: 20210113
  Serious: No
  Sender: FDA-Public Use
  Company Number: US-PFIZER INC-2020007412

PATIENT
  Age: 73 Year
  Sex: Female

DRUGS (3)
  1. LYRICA [Suspect]
     Active Substance: PREGABALIN
     Dosage: 300 MG, DAILY (150 MG, 2X/DAY)
     Route: 048
     Dates: start: 20160620
  2. LYRICA [Suspect]
     Active Substance: PREGABALIN
     Dosage: 225 MG, DAILY (75 MG IN THE MORNING AND 150 MG IN THE EVENING))
     Route: 048
     Dates: start: 20161121
  3. LYRICA [Suspect]
     Active Substance: PREGABALIN
     Dosage: 225 MG, DAILY (75 MG IN THE MORNING AND 150 MG IN THE EVENING)
     Route: 048

REACTIONS (2)
  - Hyperhidrosis [Unknown]
  - Hypersensitivity [Unknown]
